FAERS Safety Report 23473589 (Version 3)
Quarter: 2024Q1

REPORT INFORMATION
  Report Type: Spontaneous
  Country: JP (occurrence: JP)
  Receive Date: 20240203
  Receipt Date: 20240311
  Transmission Date: 20240410
  Serious: Yes (Other)
  Sender: FDA-Public Use
  Company Number: JP-Ipsen Biopharmaceuticals, Inc.-2023-07876

PATIENT
  Age: 68 Year
  Sex: Female

DRUGS (2)
  1. LANREOTIDE ACETATE [Suspect]
     Active Substance: LANREOTIDE ACETATE
     Indication: Thyroid stimulating hormone-producing pituitary tumour
     Dosage: 90 MILLIGRAM PER 4-5 WEEKS
     Route: 058
     Dates: start: 20220813, end: 20230204
  2. TENELIA OD [Concomitant]
     Indication: Diabetes mellitus
     Route: 048
     Dates: start: 20230107

REACTIONS (1)
  - Diabetes mellitus [Not Recovered/Not Resolved]

NARRATIVE: CASE EVENT DATE: 20230107
